FAERS Safety Report 9209680 (Version 1)
Quarter: 2013Q1

REPORT INFORMATION
  Report Type: Spontaneous
  Country: US (occurrence: None)
  Receive Date: 20120820
  Receipt Date: 20120820
  Transmission Date: 20140127
  Serious: No
  Sender: FDA-Public Use
  Company Number: 1000030237

PATIENT
  Age: 75 Year
  Sex: Female

DRUGS (5)
  1. VIIBRYD (VILAZODONE) [Suspect]
     Indication: DEPRESSION
     Route: 048
     Dates: start: 20120502
  2. REMERON (MIRTAZAPINE) (MIRTAZAPINE) [Concomitant]
  3. MICARDIS (TELMISARTAN) (TELMISARTAN) [Concomitant]
  4. NORVASC (AMLODIPINE BESILATE) (AMLODIPINE BESILATE) [Concomitant]
  5. LIPITOR (ATORVASTATIN CALCIUM) ATORVASTATIN CALCIUM) [Concomitant]

REACTIONS (3)
  - Diarrhoea [None]
  - Nausea [None]
  - Asthenia [None]
